FAERS Safety Report 9295750 (Version 2)
Quarter: 2013Q2

REPORT INFORMATION
  Report Type: Report from Study
  Country: ES (occurrence: ES)
  Receive Date: 20130517
  Receipt Date: 20130523
  Transmission Date: 20140414
  Serious: Yes (Hospitalization)
  Sender: FDA-Public Use
  Company Number: ES-ROCHE-1223401

PATIENT
  Age: 48 Year
  Sex: Female

DRUGS (4)
  1. TRASTUZUMAB [Suspect]
     Indication: BREAST CANCER
     Dosage: LAST DOSE PRIOR TO SAE ON 12/APR/2013
     Route: 042
     Dates: start: 20120626, end: 20130507
  2. CAPECITABINE [Suspect]
     Indication: BREAST CANCER
     Dosage: LAST DOSE PRIOR TO SAE 23/MAR/2013
     Route: 048
     Dates: start: 20120626, end: 20130507
  3. OMEPRAZOL [Concomitant]
     Route: 065
     Dates: start: 2013
  4. IBUPROFEN [Concomitant]
     Route: 065
     Dates: start: 2013

REACTIONS (1)
  - Cholangitis [Recovered/Resolved]
